FAERS Safety Report 4283167-8 (Version None)
Quarter: 2004Q1

REPORT INFORMATION
  Report Type: 
  Country: None (occurrence: None)
  Receive Date: 20040116
  Receipt Date: 20031109
  Transmission Date: 20041129
  Serious: Yes (Hospitalization, Other)
  Sender: FDA-Public Use
  Company Number: KII-2003-0006821

PATIENT
  Age: 41 Year
  Sex: Male

DRUGS (5)
  1. MORPHINE SULFATE [Suspect]
     Indication: DRUG USE FOR UNKNOWN INDICATION
  2. OXYCODONE HCL [Suspect]
     Indication: DRUG USE FOR UNKNOWN INDICATION
  3. ETHANOL (ETHANOL) [Suspect]
     Indication: DRUG USE FOR UNKNOWN INDICATION
  4. ANTIPSYCHIOTICS () [Suspect]
     Indication: DRUG USE FOR UNKNOWN INDICATION
  5. ANXIOLYTICS() [Suspect]
     Indication: DRUG USE FOR UNKNOWN INDICATION

REACTIONS (14)
  - AGITATION [None]
  - ALANINE AMINOTRANSFERASE INCREASED [None]
  - ASPARTATE AMINOTRANSFERASE INCREASED [None]
  - BLOOD ETHANOL [None]
  - BLOOD GLUCOSE ABNORMAL [None]
  - BLOOD POTASSIUM ABNORMAL [None]
  - COMA [None]
  - CONFUSIONAL STATE [None]
  - ELECTROCARDIOGRAM QT CORRECTED INTERVAL PROLONGED [None]
  - HYPOTENSION [None]
  - INTENTIONAL OVERDOSE [None]
  - MULTIPLE DRUG OVERDOSE [None]
  - SEDATION [None]
  - SPEECH DISORDER [None]
